FAERS Safety Report 9348489 (Version 1)
Quarter: 2013Q2

REPORT INFORMATION
  Report Type: Spontaneous
  Country: US (occurrence: None)
  Receive Date: 20130613
  Receipt Date: 20130613
  Transmission Date: 20140414
  Serious: No
  Sender: FDA-Public Use
  Company Number: None

PATIENT
  Age: 35 Year
  Sex: Female

DRUGS (2)
  1. CYMBALTA [Suspect]
     Indication: ANXIETY
     Dosage: FEB - MARCH ?
     Route: 048
  2. CYMBALTA [Suspect]
     Indication: DEPRESSION
     Dosage: FEB - MARCH ?
     Route: 048

REACTIONS (9)
  - Drug withdrawal syndrome [None]
  - Dizziness [None]
  - Vertigo [None]
  - Irritability [None]
  - Anger [None]
  - Depression [None]
  - Influenza like illness [None]
  - Violence-related symptom [None]
  - Paraesthesia [None]
